FAERS Safety Report 8451260-1 (Version None)
Quarter: 2012Q2

REPORT INFORMATION
  Report Type: 
  Country: None (occurrence: None)
  Receive Date: 20120620
  Receipt Date: 20120330
  Transmission Date: 20120825
  Serious: No
  Sender: FDA-Public Use
  Company Number: US-VERTEX PHARMACEUTICALS INC.-AE-2012-001969

PATIENT
  Sex: Male
  Weight: 108.96 kg

DRUGS (4)
  1. INCIVEK [Suspect]
     Indication: HEPATITIS C
     Route: 048
     Dates: start: 20120115
  2. PEGASYS [Concomitant]
     Indication: HEPATITIS C
     Route: 058
     Dates: start: 20120115
  3. RIBAVIRIN [Concomitant]
     Indication: HEPATITIS C
     Dates: start: 20120115
  4. AMLODIPINE BESYLATE [Concomitant]
     Indication: BLOOD PRESSURE

REACTIONS (18)
  - ABDOMINAL PAIN [None]
  - ABDOMINAL DISTENSION [None]
  - MALE ORGASMIC DISORDER [None]
  - BONE PAIN [None]
  - TESTICULAR DISORDER [None]
  - NAUSEA [None]
  - DECREASED APPETITE [None]
  - INJECTION SITE ERYTHEMA [None]
  - HAEMORRHOIDAL HAEMORRHAGE [None]
  - WEIGHT DECREASED [None]
  - HEADACHE [None]
  - ABDOMINAL DISCOMFORT [None]
  - DIARRHOEA [None]
  - ALOPECIA [None]
  - CHEST DISCOMFORT [None]
  - CHILLS [None]
  - ANAL PRURITUS [None]
  - ANORECTAL DISCOMFORT [None]
